FAERS Safety Report 12796976 (Version 1)
Quarter: 2016Q3

REPORT INFORMATION
  Report Type: Spontaneous
  Country: FR (occurrence: FR)
  Receive Date: 20160930
  Receipt Date: 20160930
  Transmission Date: 20161109
  Serious: Yes (Death)
  Sender: FDA-Public Use
  Company Number: FR-TEVA-694875ROM

PATIENT
  Age: 60 Year
  Sex: Male

DRUGS (5)
  1. FLUCONAZOLE. [Concomitant]
     Active Substance: FLUCONAZOLE
  2. VESANOID [Suspect]
     Active Substance: TRETINOIN
     Indication: ACUTE MYELOID LEUKAEMIA
     Dosage: 80 MILLIGRAM DAILY;
     Route: 048
     Dates: start: 20160211, end: 20160221
  3. AMOXICILLINE /ACIDE CLUVANIQUE [Concomitant]
  4. DEXAMETHASONE. [Concomitant]
     Active Substance: DEXAMETHASONE
     Dosage: 20 MILLIGRAM DAILY;
     Dates: start: 20160219, end: 20160229
  5. TRISENOX [Suspect]
     Active Substance: ARSENIC TRIOXIDE
     Indication: ACUTE MYELOID LEUKAEMIA
     Dosage: 12 MILLIGRAM DAILY;
     Route: 042
     Dates: start: 20160216, end: 20160228

REACTIONS (3)
  - Hepatic failure [Fatal]
  - Hepatic encephalopathy [Fatal]
  - Acute promyelocytic leukaemia differentiation syndrome [Fatal]

NARRATIVE: CASE EVENT DATE: 20160219
